FAERS Safety Report 7751237-5 (Version None)
Quarter: 2011Q3

REPORT INFORMATION
  Report Type: 
  Country: None (occurrence: None)
  Receive Date: 20110914
  Receipt Date: 20090427
  Transmission Date: 20111222
  Serious: Yes (Hospitalization)
  Sender: FDA-Public Use
  Company Number: PHHY2009NL67047

PATIENT
  Sex: Female

DRUGS (2)
  1. SANDOSTATIN LAR [Suspect]
     Indication: DIARRHOEA
     Dosage: UNK
     Dates: start: 20080606
  2. SANDOSTATIN LAR [Suspect]
     Dosage: 40 MG, ONCE PER 4 WEEKS
     Dates: start: 20080610

REACTIONS (2)
  - LIVER DISORDER [None]
  - PYREXIA [None]
